FAERS Safety Report 23334756 (Version 1)
Quarter: 2023Q4

REPORT INFORMATION
  Report Type: Report from Study
  Country: CA (occurrence: CA)
  Receive Date: 20231224
  Receipt Date: 20231224
  Transmission Date: 20240110
  Serious: Yes (Other)
  Sender: FDA-Public Use
  Company Number: CA-ABBVIE-5520194

PATIENT
  Sex: Female

DRUGS (1)
  1. RINVOQ [Suspect]
     Active Substance: UPADACITINIB
     Indication: Rheumatoid arthritis
     Dosage: FORM STRENGTH: 15 MILLIGRAM
     Route: 048
     Dates: start: 20231031

REACTIONS (11)
  - Deafness unilateral [Unknown]
  - Papule [Unknown]
  - Cough [Unknown]
  - Secretion discharge [Recovering/Resolving]
  - Tooth dislocation [Unknown]
  - Facial pain [Unknown]
  - Feeding disorder [Unknown]
  - Tooth infection [Unknown]
  - Sinusitis [Unknown]
  - Middle ear effusion [Unknown]
  - Pneumonia [Unknown]

NARRATIVE: CASE EVENT DATE: 20230101
